FAERS Safety Report 5776062-6 (Version None)
Quarter: 2008Q2

REPORT INFORMATION
  Report Type: 
  Country: None (occurrence: None)
  Receive Date: 20080613
  Receipt Date: 20080604
  Transmission Date: 20081010
  Serious: Yes (Death, Other)
  Sender: FDA-Public Use
  Company Number: 087-20785-08060333

PATIENT

DRUGS (1)
  1. THALOMID [Suspect]
     Indication: MULTIPLE MYELOMA
     Dosage: 200 MG-400 MG, HS, ORAL
     Route: 048
     Dates: start: 19981101, end: 20051001

REACTIONS (24)
  - CARDIAC FAILURE [None]
  - CONSTIPATION [None]
  - CYTOGENETIC ABNORMALITY [None]
  - DISEASE PROGRESSION [None]
  - DIZZINESS [None]
  - DRUG TOXICITY [None]
  - DRY MOUTH [None]
  - HAEMATOTOXICITY [None]
  - HEARING IMPAIRED [None]
  - INFECTION [None]
  - INTERSTITIAL LUNG DISEASE [None]
  - LYMPHOPENIA [None]
  - MYOPATHY [None]
  - NAUSEA [None]
  - NEUROPATHY PERIPHERAL [None]
  - NEUTROPENIA [None]
  - PNEUMONIA FUNGAL [None]
  - PULMONARY HYPERTENSION [None]
  - PYREXIA [None]
  - RADIAL NERVE PALSY [None]
  - RASH [None]
  - SOMNOLENCE [None]
  - THROMBOCYTOPENIA [None]
  - VOMITING [None]
